FAERS Safety Report 4541903-7 (Version None)
Quarter: 2004Q4

REPORT INFORMATION
  Report Type: 
  Country: None (occurrence: None)
  Receive Date: 20041230
  Receipt Date: 20041228
  Transmission Date: 20050328
  Serious: Yes (Hospitalization, Other)
  Sender: FDA-Public Use
  Company Number: PHNU2004DE04317

PATIENT
  Age: 61 Year
  Sex: Male

DRUGS (3)
  1. AREDIA [Suspect]
     Dosage: UNK, UNK
     Dates: end: 20040101
  2. AREDIA [Suspect]
     Dosage: 1 DF, ONCE/SINGLE
     Dates: start: 20041227, end: 20041227
  3. PLAVIX [Concomitant]
     Route: 048
     Dates: start: 20041201

REACTIONS (3)
  - APHASIA [None]
  - CEREBROVASCULAR ACCIDENT [None]
  - TINNITUS [None]
